FAERS Safety Report 15782630 (Version 1)
Quarter: 2019Q1

REPORT INFORMATION
  Report Type: Report from Study
  Country: ES (occurrence: ES)
  Receive Date: 20190102
  Receipt Date: 20190102
  Transmission Date: 20190417
  Serious: Yes (Other)
  Sender: FDA-Public Use
  Company Number: ES-SA-2018SA396138

PATIENT
  Sex: Female
  Weight: 93 kg

DRUGS (2)
  1. INSULIN GLARGINE [Suspect]
     Active Substance: INSULIN GLARGINE
     Indication: DIABETES MELLITUS
     Dosage: 90 IU, QD
     Route: 058
     Dates: start: 20180508
  2. HUMALOG [Concomitant]
     Active Substance: INSULIN LISPRO
     Indication: TYPE 2 DIABETES MELLITUS
     Dosage: 20 U, TID
     Route: 058

REACTIONS (2)
  - Hypoglycaemia [Recovered/Resolved]
  - Blood iron decreased [Recovering/Resolving]
